FAERS Safety Report 7199293-X (Version None)
Quarter: 2010Q4

REPORT INFORMATION
  Report Type: 
  Country: None (occurrence: None)
  Receive Date: 20101223
  Receipt Date: 20101223
  Transmission Date: 20110411
  Serious: Yes (Other)
  Sender: FDA-Public Use
  Company Number: None

PATIENT
  Sex: Female
  Weight: 52.6173 kg

DRUGS (1)
  1. DYSPORT [Suspect]
     Indication: MUSCLE SPASMS
     Dosage: 2 DO NOT KNOW STRENGTH USED INJECTION ONLY USED ON ME ONCE
     Dates: start: 20100127

REACTIONS (1)
  - MALAISE [None]
